FAERS Safety Report 5072240-2 (Version None)
Quarter: 2006Q3

REPORT INFORMATION
  Report Type: 
  Country: None (occurrence: None)
  Receive Date: 20060807
  Receipt Date: 20060515
  Transmission Date: 20061208
  Serious: Yes (Death, Hospitalization, Other)
  Sender: FDA-Public Use
  Company Number: GB-BRISTOL-MYERS SQUIBB COMPANY-13376900

PATIENT
  Age: 43 Year
  Sex: Female
  Weight: 45 kg

DRUGS (15)
  1. EFAVIRENZ [Suspect]
     Indication: HIV INFECTION
     Dosage: STOPPED ON 03-JUN-2005 AND RESTARTED 06-JUL-2005
     Route: 048
     Dates: start: 20050506, end: 20050830
  2. RIFINAH [Suspect]
  3. ETHAMBUTOL HYDROCHLORIDE [Suspect]
     Route: 048
     Dates: start: 20050404, end: 20050830
  4. TENOFOVIR [Concomitant]
     Route: 048
     Dates: start: 20050624, end: 20050830
  5. LAMIVUDINE [Concomitant]
     Route: 048
     Dates: start: 20050511, end: 20050830
  6. PHENYTOIN [Concomitant]
  7. CO-TRIMOXAZOLE [Concomitant]
     Indication: PROPHYLAXIS
     Route: 048
     Dates: start: 20050401, end: 20050801
  8. PYRIDOXINE HCL [Concomitant]
     Route: 048
     Dates: start: 20050404, end: 20050830
  9. CLEXANE [Concomitant]
     Route: 048
     Dates: start: 20050502, end: 20050823
  10. PREDNISOLONE [Concomitant]
     Route: 048
     Dates: start: 20050627, end: 20050830
  11. OMEPRAZOLE [Concomitant]
     Route: 048
     Dates: start: 20050811, end: 20050819
  12. PHENYTOIN [Concomitant]
     Route: 048
     Dates: start: 20050802, end: 20050822
  13. CIPROFLOXACIN [Concomitant]
  14. GENTAMICIN [Concomitant]
  15. MEROPENEM [Concomitant]
     Dates: start: 20050822, end: 20050828

REACTIONS (5)
  - IMMUNE RECONSTITUTION SYNDROME [None]
  - LIVER FUNCTION TEST ABNORMAL [None]
  - RASH MACULO-PAPULAR [None]
  - TOXIC EPIDERMAL NECROLYSIS [None]
  - TUBERCULOSIS [None]
